FAERS Safety Report 6807050-6 (Version None)
Quarter: 2010Q2

REPORT INFORMATION
  Report Type: 
  Country: None (occurrence: None)
  Receive Date: 20100629
  Receipt Date: 20080707
  Transmission Date: 20101027
  Serious: No
  Sender: FDA-Public Use
  Company Number: US-PFIZER INC-2008056769

PATIENT
  Sex: Male

DRUGS (5)
  1. ZYVOX [Suspect]
     Indication: INCISION SITE INFECTION
     Dates: start: 20080611, end: 20080626
  2. WARFARIN SODIUM [Concomitant]
  3. LIPITOR [Concomitant]
  4. PACERONE [Concomitant]
  5. AVELOX [Concomitant]

REACTIONS (2)
  - TONGUE DISCOLOURATION [None]
  - TOOTH DISCOLOURATION [None]
